FAERS Safety Report 11870616 (Version 1)
Quarter: 2015Q4

REPORT INFORMATION
  Report Type: Spontaneous
  Country: US (occurrence: US)
  Receive Date: 20151228
  Receipt Date: 20151228
  Transmission Date: 20160305
  Serious: Yes (Death, Other)
  Sender: FDA-Public Use
  Company Number: US-SANOFI-AVENTIS-2012SA017220

PATIENT
  Age: 78 Year
  Sex: Female
  Weight: 58 kg

DRUGS (35)
  1. COMPAZINE [Concomitant]
     Active Substance: PROCHLORPERAZINE MALEATE
  2. SODIUM CHLORIDE. [Concomitant]
     Active Substance: SODIUM CHLORIDE
     Dosage: 0.9 % I 1000 ML
  3. LIDOCAINE. [Concomitant]
     Active Substance: LIDOCAINE
     Dosage: STRENGTH: 1 %
  4. MAGNESIUM OXIDE. [Concomitant]
     Active Substance: MAGNESIUM OXIDE
  5. LACTULOSE. [Concomitant]
     Active Substance: LACTULOSE
     Indication: CONSTIPATION
     Dosage: DOSE:1 TO 2 TABLESPOON
  6. LISINOPRIL. [Concomitant]
     Active Substance: LISINOPRIL
  7. ALENDRONATE [Concomitant]
     Active Substance: ALENDRONATE SODIUM
     Dosage: STRENGTH:70 MG?TAKE ON EMPTY STOMACH AT--LEAST  30 MINUTES BEFORE BREAKFAST
     Route: 048
  8. FUROSEMIDE. [Concomitant]
     Active Substance: FUROSEMIDE
     Dosage: STRENGTH: 20 MG
     Route: 048
  9. PLAVIX [Suspect]
     Active Substance: CLOPIDOGREL BISULFATE
     Indication: ARTERIAL DISORDER
     Route: 065
     Dates: start: 20080116, end: 20110315
  10. HYDROCODONE [Concomitant]
     Active Substance: HYDROCODONE
     Indication: PAIN
     Route: 048
  11. PRAVASTATIN SODIUM. [Concomitant]
     Active Substance: PRAVASTATIN SODIUM
  12. PANTOPRAZOLE [Concomitant]
     Active Substance: PANTOPRAZOLE SODIUM
     Dosage: STRENGTH:40 MG
     Route: 048
  13. PLAVIX [Suspect]
     Active Substance: CLOPIDOGREL BISULFATE
     Indication: PROPHYLAXIS
     Route: 065
     Dates: start: 20080116, end: 20110315
  14. NITROGLYCERINE [Concomitant]
     Active Substance: NITROGLYCERIN
     Route: 060
  15. LOPRESSOR [Concomitant]
     Active Substance: METOPROLOL TARTRATE
     Route: 048
  16. TEMAZEPAM. [Concomitant]
     Active Substance: TEMAZEPAM
  17. OMEPRAZOLE. [Concomitant]
     Active Substance: OMEPRAZOLE
     Dosage: STRENGTH:20MG? IN THE  MORNING  BEFORE BREAKFAST
     Route: 048
  18. POTASSIUM CHLORIDE. [Concomitant]
     Active Substance: POTASSIUM CHLORIDE
     Route: 048
  19. NORCO [Concomitant]
     Active Substance: ACETAMINOPHEN\HYDROCODONE BITARTRATE
  20. TORSEMIDE. [Concomitant]
     Active Substance: TORSEMIDE
  21. HYDRALAZINE [Concomitant]
     Active Substance: HYDRALAZINE HYDROCHLORIDE
     Dosage: STRENGTH:10 MG
     Route: 048
  22. GABAPENTIN. [Concomitant]
     Active Substance: GABAPENTIN
     Dosage: STRENGTH: 100 MG? AT BEDTIME. MAY INCREASE TO 3 CAPSULES  DAILY AT BEDTIME AS TOLERATED
     Route: 048
  23. ASPIRIN. [Suspect]
     Active Substance: ASPIRIN
     Route: 065
     Dates: start: 200801
  24. MAGNESIUM SULFATE. [Concomitant]
     Active Substance: MAGNESIUM SULFATE
  25. CLONIDINE HYDROCHLORIDE. [Concomitant]
     Active Substance: CLONIDINE HYDROCHLORIDE
     Indication: BLOOD PRESSURE MEASUREMENT
  26. AMLODIPINE BESILATE [Concomitant]
     Active Substance: AMLODIPINE BESYLATE
     Route: 048
  27. LABETALOL [Concomitant]
     Active Substance: LABETALOL\LABETALOL HYDROCHLORIDE
     Indication: HYPERTENSION
     Dosage: STRENGTH:100 MG
     Route: 048
  28. LEVOTHYROXINE SODIUM. [Concomitant]
     Active Substance: LEVOTHYROXINE SODIUM
     Route: 048
  29. NORTRIPTYLINE [Concomitant]
     Active Substance: NORTRIPTYLINE
     Dosage: STRENGTH:10 MG?BEDTIME FOR 7  DAYS THEN  2  CAPSULES AT BED TIME AS TOLERATED
     Route: 048
  30. TYLENOL [Concomitant]
     Active Substance: ACETAMINOPHEN
     Route: 048
  31. BENADRYL [Concomitant]
     Active Substance: DIPHENHYDRAMINE HYDROCHLORIDE
  32. VITAMIN D [Concomitant]
     Active Substance: CHOLECALCIFEROL
     Dosage: TAKE ONE CAPSULE TWICE WEEKLY FOR 6 WEEKS, THEN ONE CAPSULE MONTHLY
  33. FELODIPINE. [Concomitant]
     Active Substance: FELODIPINE
     Dosage: STRENGTH: 5 MG
     Route: 048
  34. LIDODERM [Concomitant]
     Active Substance: LIDOCAINE
     Dosage: STRENGTH:5 PERCENT?APPLY ONE PATCH TO AFFECTED AREA 12 HOURS ON AND 12 HOURS OFF
  35. NORTRIPTYLINE [Concomitant]
     Active Substance: NORTRIPTYLINE
     Dosage: STRENGTH:10 MG?BEDTIME FOR 7  DAYS THEN  2  CAPSULES AT BED TIME AS TOLERATED
     Route: 048

REACTIONS (1)
  - Ulcer haemorrhage [Unknown]

NARRATIVE: CASE EVENT DATE: 201103
